FAERS Safety Report 14481628 (Version 1)
Quarter: 2018Q1

REPORT INFORMATION
  Report Type: Spontaneous
  Country: RU (occurrence: RU)
  Receive Date: 20180202
  Receipt Date: 20180202
  Transmission Date: 20180509
  Serious: Yes (Other)
  Sender: FDA-Public Use
  Company Number: RU-TEVA-2018-RU-851571

PATIENT
  Age: 42 Year
  Sex: Female

DRUGS (2)
  1. AGALATES [Suspect]
     Active Substance: CABERGOLINE
     Indication: HYPERPROLACTINAEMIA
  2. AGALATES [Suspect]
     Active Substance: CABERGOLINE
     Indication: PITUITARY TUMOUR BENIGN
     Route: 048

REACTIONS (2)
  - Cardiac arrest [Recovered/Resolved]
  - Atrioventricular block second degree [Not Recovered/Not Resolved]
